FAERS Safety Report 23115265 (Version 1)
Quarter: 2023Q4

REPORT INFORMATION
  Report Type: Report from Study
  Country: US (occurrence: US)
  Receive Date: 20231027
  Receipt Date: 20231027
  Transmission Date: 20240110
  Serious: No
  Sender: FDA-Public Use
  Company Number: US-002147023-NVSC2023US227057

PATIENT
  Sex: Female
  Weight: 58.957 kg

DRUGS (2)
  1. COSENTYX [Suspect]
     Active Substance: SECUKINUMAB
     Indication: Product used for unknown indication
     Dosage: 150 MG, QMO (STRENGTH: 150)
     Route: 065
     Dates: start: 2022, end: 202309
  2. COSENTYX [Suspect]
     Active Substance: SECUKINUMAB
     Dosage: UNK
     Route: 065
     Dates: start: 20230920

REACTIONS (2)
  - Hypoaesthesia [Unknown]
  - Product dose omission issue [Unknown]
